FAERS Safety Report 16862446 (Version 7)
Quarter: 2020Q1

REPORT INFORMATION
  Report Type: Report from Study
  Country: CA (occurrence: CA)
  Receive Date: 20190927
  Receipt Date: 20200313
  Transmission Date: 20200409
  Serious: Yes (Other)
  Sender: FDA-Public Use
  Company Number: CA-BRISTOL-MYERS SQUIBB COMPANY-BMS-2019-092556

PATIENT
  Age: 50 Year
  Sex: Male

DRUGS (3)
  1. NIVOLUMAB [Suspect]
     Active Substance: NIVOLUMAB
     Indication: MALIGNANT MELANOMA
     Dosage: 1 DOSAGE FORM=291 MG GIVEN INSTEAD OF 297 MG, Q2WK
     Route: 042
     Dates: start: 20190909
  2. NIVOLUMAB [Suspect]
     Active Substance: NIVOLUMAB
     Indication: SALIVARY GLAND CANCER
     Dosage: 1 DOSAGE FORM, Q2WK
     Route: 042
     Dates: start: 20190909
  3. NIVOLUMAB [Suspect]
     Active Substance: NIVOLUMAB
     Indication: PRODUCT USED FOR UNKNOWN INDICATION
     Dosage: 3 MILLIGRAM/KILOGRAM, Q2WK
     Route: 042
     Dates: start: 20190909

REACTIONS (10)
  - Incorrect dose administered [Unknown]
  - Lymphocyte count increased [Unknown]
  - Abdominal pain [Unknown]
  - Myalgia [Unknown]
  - Rash [Not Recovered/Not Resolved]
  - Fatigue [Unknown]
  - Muscle injury [Unknown]
  - Melaena [Unknown]
  - Hernia [Unknown]
  - Pain in extremity [Unknown]

NARRATIVE: CASE EVENT DATE: 20190924
